FAERS Safety Report 14342678 (Version 3)
Quarter: 2018Q3

REPORT INFORMATION
  Report Type: Report from Study
  Country: US (occurrence: US)
  Receive Date: 20180102
  Receipt Date: 20180902
  Transmission Date: 20181010
  Serious: No
  Sender: FDA-Public Use
  Company Number: PHEH2017US042322

PATIENT
  Sex: Female

DRUGS (1)
  1. GILENYA [Suspect]
     Active Substance: FINGOLIMOD HYDROCHLORIDE
     Indication: MULTIPLE SCLEROSIS
     Dosage: 0.5 MG, QD
     Route: 048
     Dates: start: 20180729

REACTIONS (6)
  - Nasopharyngitis [Unknown]
  - Herpes zoster [Unknown]
  - White blood cell count decreased [Unknown]
  - Irritable bowel syndrome [Unknown]
  - Diarrhoea [Recovering/Resolving]
  - Constipation [Recovering/Resolving]
